FAERS Safety Report 20170142 (Version 1)
Quarter: 2021Q4

REPORT INFORMATION
  Report Type: Report from Study
  Country: EG (occurrence: EG)
  Receive Date: 20211210
  Receipt Date: 20211210
  Transmission Date: 20220303
  Serious: Yes (Other)
  Sender: FDA-Public Use
  Company Number: EG-NOVARTISPH-NVSC2021EG279097

PATIENT
  Age: 37 Year
  Sex: Female

DRUGS (2)
  1. GILENYA [Suspect]
     Active Substance: FINGOLIMOD HYDROCHLORIDE
     Indication: Multiple sclerosis
     Dosage: 1 DOSAGE FORM, QD
     Route: 048
     Dates: start: 20210130
  2. VITAMINS [Concomitant]
     Active Substance: VITAMINS
     Indication: Supplementation therapy
     Dosage: UNK
     Route: 065
     Dates: start: 202105

REACTIONS (8)
  - Alopecia [Not Recovered/Not Resolved]
  - Optic nerve disorder [Recovered/Resolved]
  - Blindness transient [Recovered/Resolved]
  - Visual impairment [Recovering/Resolving]
  - Vitreous floaters [Recovered/Resolved]
  - Onychoclasis [Not Recovered/Not Resolved]
  - White blood cell count decreased [Unknown]
  - Hepatic enzyme decreased [Unknown]

NARRATIVE: CASE EVENT DATE: 20210401
